FAERS Safety Report 16525367 (Version 1)
Quarter: 2019Q3

REPORT INFORMATION
  Report Type: Spontaneous
  Country: US (occurrence: US)
  Receive Date: 20190522
  Receipt Date: 20190522
  Transmission Date: 20191004
  Serious: No
  Sender: FDA-Public Use
  Company Number: None

PATIENT
  Age: 62 Year
  Sex: Female

DRUGS (1)
  1. VIVITROL [Suspect]
     Active Substance: NALTREXONE
     Indication: PRODUCT USED FOR UNKNOWN INDICATION
     Dosage: 389MG EVERY 8 WEEKS INTRAMUSCULAR
     Route: 030
     Dates: start: 20190319

REACTIONS (4)
  - Fatigue [None]
  - Hypoaesthesia [None]
  - Injection site mass [None]
  - Pain [None]

NARRATIVE: CASE EVENT DATE: 20190319
